FAERS Safety Report 18460911 (Version 1)
Quarter: 2020Q4

REPORT INFORMATION
  Report Type: Other
  Country: US (occurrence: US)
  Receive Date: 20201104
  Receipt Date: 20201104
  Transmission Date: 20210114
  Serious: Yes (Other)
  Sender: FDA-Public Use
  Company Number: US-EYWA PHARMA INC.-2093580

PATIENT
  Age: 42 Year
  Sex: Male
  Weight: 107.6 kg

DRUGS (1)
  1. ACETAZOLAMIDE. [Suspect]
     Active Substance: ACETAZOLAMIDE
     Indication: CENTRAL NERVOUS SYSTEM FUNCTION TEST
     Route: 040

REACTIONS (2)
  - Metabolic acidosis [Recovered/Resolved]
  - Hyperkalaemia [Recovered/Resolved]
